FAERS Safety Report 7690861-5 (Version None)
Quarter: 2011Q3

REPORT INFORMATION
  Report Type: 
  Country: None (occurrence: None)
  Receive Date: 20110818
  Receipt Date: 20110809
  Transmission Date: 20111222
  Serious: Yes (Other)
  Sender: FDA-Public Use
  Company Number: PHHY2011GB71338

PATIENT
  Age: 36 Year
  Sex: Female

DRUGS (5)
  1. M-M-RVAX [Suspect]
     Dates: start: 20090619, end: 20090619
  2. AMOXICILLIN [Suspect]
     Indication: LOWER RESPIRATORY TRACT INFECTION
     Dates: start: 20090930, end: 20091007
  3. M-M-RVAX [Suspect]
     Indication: IMMUNISATION
     Dates: start: 20090515, end: 20090515
  4. FERROUS SULFATE TAB [Concomitant]
     Indication: ANAEMIA
     Dates: start: 20100225, end: 20100301
  5. ACIDEX [Suspect]
     Indication: GASTROOESOPHAGEAL REFLUX DISEASE
     Dosage: 10 ML, UNK
     Dates: start: 20091208

REACTIONS (3)
  - PROTEINURIA [None]
  - HYPERTENSION [None]
  - MATERNAL EXPOSURE DURING PREGNANCY [None]
